FAERS Safety Report 6768638-4 (Version None)
Quarter: 2010Q2

REPORT INFORMATION
  Report Type: 
  Country: None (occurrence: None)
  Receive Date: 20100614
  Receipt Date: 20100610
  Transmission Date: 20101027
  Serious: Yes (Other)
  Sender: FDA-Public Use
  Company Number: CHPA2010GB09772

PATIENT
  Sex: Male

DRUGS (1)
  1. SCOPOLAMINE [Suspect]
     Indication: SALIVARY HYPERSECRETION
     Dosage: 1 DF, Q72H
     Route: 062

REACTIONS (2)
  - DRUG INEFFECTIVE FOR UNAPPROVED INDICATION [None]
  - PNEUMONIA ASPIRATION [None]
